FAERS Safety Report 6368652-7 (Version None)
Quarter: 2009Q3

REPORT INFORMATION
  Report Type: 
  Country: None (occurrence: None)
  Receive Date: 20090917
  Receipt Date: 20090917
  Transmission Date: 20100115
  Serious: No
  Sender: FDA-Public Use
  Company Number: None

PATIENT
  Age: 57 Year
  Sex: Female
  Weight: 61.2356 kg

DRUGS (1)
  1. LYRICA [Suspect]
     Indication: FIBROMYALGIA
     Dosage: 150MG BID PO
     Route: 048
     Dates: start: 20090228, end: 20090501

REACTIONS (4)
  - BLOOD GLUCOSE DECREASED [None]
  - EYE DISORDER [None]
  - MUSCLE TWITCHING [None]
  - URINARY RETENTION [None]
